FAERS Safety Report 7241048-1 (Version None)
Quarter: 2011Q1

REPORT INFORMATION
  Report Type: 
  Country: None (occurrence: None)
  Receive Date: 20110120
  Receipt Date: 20110120
  Transmission Date: 20110831
  Serious: Yes (Life-Threatening, Hospitalization, Other)
  Sender: FDA-Public Use
  Company Number: None

PATIENT
  Sex: Male
  Weight: 79.3795 kg

DRUGS (2)
  1. FLOVENT [Suspect]
     Dosage: 44, 88, 110
  2. PULMICORT [Suspect]
     Dosage: 90, 180, 720

REACTIONS (14)
  - STRESS [None]
  - MENTAL IMPAIRMENT [None]
  - PANIC ATTACK [None]
  - GASTROOESOPHAGEAL REFLUX DISEASE [None]
  - FALL [None]
  - DYSURIA [None]
  - CATARACT SUBCAPSULAR [None]
  - BLOOD THYROID STIMULATING HORMONE INCREASED [None]
  - VITAMIN D DECREASED [None]
  - CONSTIPATION [None]
  - URINARY TRACT OBSTRUCTION [None]
  - HALLUCINATION [None]
  - LEARNING DISORDER [None]
  - THYROID DISORDER [None]
